FAERS Safety Report 5887925-5 (Version None)
Quarter: 2008Q3

REPORT INFORMATION
  Report Type: 
  Country: None (occurrence: None)
  Receive Date: 20080918
  Receipt Date: 20080909
  Transmission Date: 20090109
  Serious: Yes (Death, Congenital Anomaly)
  Sender: FDA-Public Use
  Company Number: A0748062A

PATIENT
  Sex: Male

DRUGS (1)
  1. PAXIL CR [Suspect]
     Indication: DEPRESSION

REACTIONS (4)
  - DEATH [None]
  - DRUG EXPOSURE DURING PREGNANCY [None]
  - GASTROSCHISIS [None]
  - PULMONARY HYPERTENSION [None]
